FAERS Safety Report 8248834-X (Version None)
Quarter: 2012Q2

REPORT INFORMATION
  Report Type: 
  Country: None (occurrence: None)
  Receive Date: 20120401
  Receipt Date: 20120326
  Transmission Date: 20120825
  Serious: Yes (Hospitalization, Other)
  Sender: FDA-Public Use
  Company Number: PHFR2011GB06276

PATIENT
  Sex: Female
  Weight: 157 kg

DRUGS (12)
  1. LANSOPRAZOLE [Concomitant]
     Dosage: 15 MG, BID
  2. MIRTAZAPINE [Concomitant]
     Dosage: 45 MG, 1 AT NIGHT
  3. BUDESONIDE [Concomitant]
     Dosage: 200 UG, UNK
  4. TAMOXIFEN CITRATE [Concomitant]
     Dosage: 20 MG, DAILY
  5. VENTOLIN [Concomitant]
     Dosage: 100 UG, UNK
  6. CLOZARIL [Suspect]
     Dosage: 700 MG, DAILY
     Route: 048
     Dates: start: 19980202
  7. SIMVASTATIN [Concomitant]
     Dosage: 20 MG, ONE TO BE TAKEN AT NIGHT
  8. METFORMIN HCL [Concomitant]
     Dosage: 500 MG, 2 MORNING, 1 LUNCHTIME, 1 EVENING
  9. VITAMIN B COMPLEX CAP [Concomitant]
  10. HUMULIN M3 [Concomitant]
     Dosage: 100 U/ML, UNK
  11. FORMOTEROL FUMARATE [Concomitant]
     Dosage: 6 UG, UNK
  12. FERROUS SULFATE TAB [Concomitant]
     Dosage: 200 MG, UNK

REACTIONS (2)
  - ASTHMA [None]
  - PNEUMONIA [None]
